FAERS Safety Report 24649548 (Version 1)
Quarter: 2024Q4

REPORT INFORMATION
  Report Type: Spontaneous
  Country: PL (occurrence: PL)
  Receive Date: 20241121
  Receipt Date: 20241121
  Transmission Date: 20250114
  Serious: Yes (Hospitalization, Other)
  Sender: AMGEN
  Company Number: PL-AMGEN-POLSP2024223738

PATIENT
  Age: 62 Year
  Sex: Male

DRUGS (7)
  1. VECTIBIX [Suspect]
     Active Substance: PANITUMUMAB
     Indication: Colon cancer
     Dosage: UNK
     Route: 065
     Dates: start: 20200427, end: 2021
  2. VECTIBIX [Suspect]
     Active Substance: PANITUMUMAB
     Dosage: UNK
     Route: 065
     Dates: start: 20210325
  3. VECTIBIX [Suspect]
     Active Substance: PANITUMUMAB
     Dosage: UNK UNK, Q3WK (EXTENSION OF THE INTERVAL EVERY 3 WEEKS)
     Route: 065
     Dates: start: 2021
  4. VECTIBIX [Suspect]
     Active Substance: PANITUMUMAB
     Dosage: UNK,  REDUCTION OF VECTIBIX DOSE
     Route: 065
     Dates: start: 2022
  5. LEUCOVORIN [Concomitant]
     Active Substance: LEUCOVORIN\LEUCOVORIN CALCIUM
     Indication: Colon cancer
     Dosage: UNK
  6. FLUOROURACIL [Concomitant]
     Active Substance: FLUOROURACIL
     Indication: Colon cancer
     Dosage: UNK
  7. OXALIPLATIN [Concomitant]
     Active Substance: OXALIPLATIN
     Indication: Colon cancer
     Dosage: UNK

REACTIONS (9)
  - COVID-19 pneumonia [Unknown]
  - Thrombocytopenia [Unknown]
  - Atrial flutter [Unknown]
  - Cardiac ablation [Unknown]
  - Conjunctivitis [Unknown]
  - Skin toxicity [Unknown]
  - Rash [Unknown]
  - Paronychia [Unknown]
  - Skin lesion [Unknown]

NARRATIVE: CASE EVENT DATE: 20200101
